FAERS Safety Report 8300264-8 (Version None)
Quarter: 2012Q1

REPORT INFORMATION
  Report Type: 
  Country: None (occurrence: None)
  Receive Date: 20120323
  Receipt Date: 20100917
  Transmission Date: 20120608
  Serious: Yes (Hospitalization)
  Sender: FDA-Public Use
  Company Number: PHHY2010US46187

PATIENT
  Age: 72 Year
  Sex: Female
  Weight: 49 kg

DRUGS (2)
  1. TOBI [Suspect]
     Indication: CYSTIC FIBROSIS
     Dosage: 300 MG, BID, INHALATION
     Route: 055
     Dates: start: 20100827
  2. TOBI [Suspect]
     Indication: PSEUDOMONAS INFECTION
     Dosage: 300 MG, BID, INHALATION
     Route: 055
     Dates: start: 20100827

REACTIONS (3)
  - PSEUDOMONAS INFECTION [None]
  - DYSPNOEA [None]
  - COUGH [None]
